FAERS Safety Report 6802508-8 (Version None)
Quarter: 2010Q2

REPORT INFORMATION
  Report Type: 
  Country: None (occurrence: None)
  Receive Date: 20100628
  Receipt Date: 20100614
  Transmission Date: 20101027
  Serious: Yes (Other)
  Sender: FDA-Public Use
  Company Number: DE-RANBAXY-2010RR-35107

PATIENT
  Age: 46 Year
  Sex: Male
  Weight: 106 kg

DRUGS (1)
  1. SIMVASTATIN [Suspect]
     Indication: HYPERCHOLESTEROLAEMIA
     Dosage: 20 MG, QD
     Route: 048
     Dates: start: 20100412, end: 20100419

REACTIONS (3)
  - FORMICATION [None]
  - MYALGIA [None]
  - RESTLESS LEGS SYNDROME [None]
